FAERS Safety Report 5705154-2 (Version None)
Quarter: 2008Q2

REPORT INFORMATION
  Report Type: 
  Country: None (occurrence: None)
  Receive Date: 20080410
  Receipt Date: 20080401
  Transmission Date: 20081010
  Serious: Yes (Other)
  Sender: FDA-Public Use
  Company Number: 233153J08USA

PATIENT
  Age: 56 Year
  Sex: Male
  Weight: 122.4712 kg

DRUGS (6)
  1. REBIF [Suspect]
     Indication: MULTIPLE SCLEROSIS
     Dosage: 44 MCG, 3 IN 1 WEEKS, SUBCUTANEOUS
     Route: 058
     Dates: start: 20021106
  2. OMEPRAZOLE [Concomitant]
  3. DILTIAZEM XR (DILTIAZEM) [Concomitant]
  4. TIZANIDINE HCL [Concomitant]
  5. DOXAZOSIN (DOXAZOSIN) [Concomitant]
  6. COUMADIN [Concomitant]

REACTIONS (4)
  - ANGER [None]
  - COPROLALIA [None]
  - DEMENTIA ALZHEIMER'S TYPE [None]
  - FRUSTRATION [None]
